FAERS Safety Report 7978190-3 (Version None)
Quarter: 2011Q4

REPORT INFORMATION
  Report Type: 
  Country: None (occurrence: None)
  Receive Date: 20111202
  Receipt Date: 20111122
  Transmission Date: 20120403
  Serious: Yes (Other)
  Sender: FDA-Public Use
  Company Number: A0954355A

PATIENT
  Age: 25 Year
  Sex: Male
  Weight: 102.1047 kg

DRUGS (4)
  1. ASPIRIN [Concomitant]
  2. EXCEDRIN (MIGRAINE) [Suspect]
     Indication: MIGRAINE
     Dosage: UNK / AS REQUIRED / UNKNOWN
  3. ASPIRIN + CAFFEINE + PARACETAMOL (FORMULATION UNKNOWN) (ACETAMINOPHEN [Suspect]
     Indication: HEADACHE
     Dosage: UNK / UNK / UNKNOWN
  4. IBUPROFEN [Suspect]
     Indication: HEADACHE
     Dosage: 200 MG / AS REQUIRED / UNKNOWN

REACTIONS (7)
  - FEELING ABNORMAL [None]
  - RECTAL HAEMORRHAGE [None]
  - INFLAMMATION [None]
  - FATIGUE [None]
  - ASTHENIA [None]
  - TREMOR [None]
  - LIMB INJURY [None]
